FAERS Safety Report 24558163 (Version 1)
Quarter: 2024Q4

REPORT INFORMATION
  Report Type: Report from Study
  Country: DE (occurrence: DE)
  Receive Date: 20241028
  Receipt Date: 20241028
  Transmission Date: 20250115
  Serious: Yes (Hospitalization)
  Sender: ABBVIE
  Company Number: DE-ABBVIE-5914952

PATIENT
  Age: 69 Year
  Sex: Male

DRUGS (10)
  1. FOSCARBIDOPA\FOSLEVODOPA [Suspect]
     Active Substance: FOSCARBIDOPA\FOSLEVODOPA
     Indication: Parkinson^s disease
     Dosage: SD: 0.6 ML, CRN: 0.28 ML/H, CR: 0.34 ML/H, CRH: 0.36 ML/H, ED: 0.30 ML
     Route: 058
     Dates: start: 20240828
  2. BENSERAZIDE HYDROCHLORIDE\LEVODOPA [Concomitant]
     Active Substance: BENSERAZIDE HYDROCHLORIDE\LEVODOPA
     Indication: Product used for unknown indication
     Dosage: 0.5-1-1-1
     Route: 048
  3. PK-MERZ [Concomitant]
     Active Substance: AMANTADINE
     Indication: Product used for unknown indication
     Route: 048
  4. BISOPROLOL [Concomitant]
     Active Substance: BISOPROLOL\BISOPROLOL FUMARATE
     Indication: Product used for unknown indication
     Route: 048
  5. ASPIRIN [Concomitant]
     Active Substance: ASPIRIN
     Indication: Product used for unknown indication
     Route: 048
  6. XADAGO [Concomitant]
     Active Substance: SAFINAMIDE MESYLATE
     Indication: Product used for unknown indication
     Route: 048
  7. MELATONIN [Concomitant]
     Active Substance: MELATONIN
     Indication: Product used for unknown indication
  8. MOXONIDINE [Concomitant]
     Active Substance: MOXONIDINE
     Indication: Product used for unknown indication
     Dosage: 1.0_0-0
     Route: 048
  9. ONGENTYS [Concomitant]
     Active Substance: OPICAPONE
     Indication: Product used for unknown indication
     Route: 048
  10. BENSERAZIDE HYDROCHLORIDE\LEVODOPA [Concomitant]
     Active Substance: BENSERAZIDE HYDROCHLORIDE\LEVODOPA
     Indication: Product used for unknown indication
     Route: 048

REACTIONS (18)
  - Abdominal wall abscess [Not Recovered/Not Resolved]
  - Fall [Unknown]
  - Depressed mood [Unknown]
  - Neurogenic bladder [Unknown]
  - Decubitus ulcer [Unknown]
  - Psychomotor hyperactivity [Unknown]
  - Erythema [Unknown]
  - Swelling [Unknown]
  - Reduced facial expression [Unknown]
  - Resting tremor [Unknown]
  - Dysphonia [Unknown]
  - Cogwheel rigidity [Unknown]
  - Anxiety [Unknown]
  - Hypertension [Unknown]
  - Dysuria [Unknown]
  - Gait disturbance [Unknown]
  - Therapeutic product effect incomplete [Unknown]
  - Parkinsonian gait [Unknown]

NARRATIVE: CASE EVENT DATE: 20240101
